FAERS Safety Report 17292433 (Version 1)
Quarter: 2020Q1

REPORT INFORMATION
  Report Type: Spontaneous
  Country: US (occurrence: US)
  Receive Date: 20191231
  Receipt Date: 20191231
  Transmission Date: 20200409
  Serious: No
  Sender: FDA-Public Use
  Company Number: None

PATIENT
  Age: 63 Year
  Sex: Female

DRUGS (2)
  1. VALSARTAN 160MG/HCTZ 12.5MG [Suspect]
     Active Substance: HYDROCHLOROTHIAZIDE\VALSARTAN
  2. PREVACID [Suspect]
     Active Substance: LANSOPRAZOLE

REACTIONS (11)
  - Vertigo [None]
  - Thinking abnormal [None]
  - Weight decreased [None]
  - Gastrointestinal haemorrhage [None]
  - Tinnitus [None]
  - Educational problem [None]
  - Deafness [None]
  - Iron deficiency [None]
  - Disturbance in attention [None]
  - Diarrhoea [None]
  - Stress [None]

NARRATIVE: CASE EVENT DATE: 20150420
